FAERS Safety Report 21598022 (Version 1)
Quarter: 2022Q4

REPORT INFORMATION
  Report Type: Spontaneous
  Country: AU (occurrence: AU)
  Receive Date: 20221115
  Receipt Date: 20221115
  Transmission Date: 20230112
  Serious: Yes (Other)
  Sender: FDA-Public Use
  Company Number: AU-NAPPMUNDI-GBR-2022-0102863

PATIENT
  Age: 68 Year
  Sex: Female

DRUGS (1)
  1. OXYCODONE HYDROCHLORIDE [Suspect]
     Active Substance: OXYCODONE HYDROCHLORIDE
     Indication: Osteoarthritis
     Dosage: 10 MILLIGRAM, QID
     Route: 048

REACTIONS (2)
  - Metastatic neoplasm [Unknown]
  - Neoplasm malignant [Unknown]
